FAERS Safety Report 14397900 (Version 5)
Quarter: 2020Q1

REPORT INFORMATION
  Report Type: Report from Study
  Country: US (occurrence: US)
  Receive Date: 20180116
  Receipt Date: 20200102
  Transmission Date: 20200409
  Serious: Yes (Hospitalization)
  Sender: FDA-Public Use
  Company Number: US-ACTELION-A-NJ2018-165774

PATIENT
  Age: 79 Year
  Sex: Male
  Weight: 92.06 kg

DRUGS (11)
  1. ASPIRIN. [Concomitant]
     Active Substance: ASPIRIN
     Dosage: 81 MG, QD
  2. TAMSULOSIN [Concomitant]
     Active Substance: TAMSULOSIN
     Dosage: 0.4 MG, QD
  3. GLIPIZIDE. [Concomitant]
     Active Substance: GLIPIZIDE
     Dosage: 5 MG, QD
  4. PRILOSEC [Concomitant]
     Active Substance: OMEPRAZOLE MAGNESIUM
     Dosage: 40 MG, QD
  5. BUMETANIDE. [Concomitant]
     Active Substance: BUMETANIDE
     Dosage: 4 MG, QD
  6. OPSUMIT [Suspect]
     Active Substance: MACITENTAN
     Indication: PULMONARY ARTERIAL HYPERTENSION
     Dosage: 10 MG, QD
     Route: 048
     Dates: start: 201702
  7. COLACE [Concomitant]
     Active Substance: DOCUSATE SODIUM
  8. VITAMIN D [Concomitant]
     Active Substance: VITAMIN D NOS
  9. SPIRONOLACTONE. [Concomitant]
     Active Substance: SPIRONOLACTONE
     Dosage: 100 MG, QD
  10. SILDENAFIL. [Concomitant]
     Active Substance: SILDENAFIL
  11. LIPITOR [Concomitant]
     Active Substance: ATORVASTATIN CALCIUM
     Dosage: 10 MG, QD

REACTIONS (6)
  - Hospitalisation [Unknown]
  - Cough [Recovering/Resolving]
  - Pyrexia [Recovering/Resolving]
  - Cardiac failure congestive [Unknown]
  - Pneumonia [Recovering/Resolving]
  - Gastrointestinal haemorrhage [Recovering/Resolving]

NARRATIVE: CASE EVENT DATE: 20180103
